FAERS Safety Report 8225123-0 (Version None)
Quarter: 2012Q1

REPORT INFORMATION
  Report Type: 
  Country: None (occurrence: None)
  Receive Date: 20120321
  Receipt Date: 20120313
  Transmission Date: 20120608
  Serious: Yes (Other)
  Sender: FDA-Public Use
  Company Number: US-JNJFOC-20120306849

PATIENT
  Sex: Female

DRUGS (2)
  1. SIMPONI [Suspect]
     Indication: RHEUMATOID ARTHRITIS
     Route: 058
     Dates: start: 20110101, end: 20120101
  2. PREDNISONE [Suspect]
     Indication: RHEUMATOID ARTHRITIS

REACTIONS (8)
  - THERAPEUTIC RESPONSE DECREASED [None]
  - PAIN [None]
  - EXERCISE TOLERANCE DECREASED [None]
  - SWELLING [None]
  - MUSCULAR WEAKNESS [None]
  - DEVICE FAILURE [None]
  - UNDERDOSE [None]
  - WEIGHT INCREASED [None]
